FAERS Safety Report 9993926 (Version 1)
Quarter: 2014Q1

REPORT INFORMATION
  Report Type: Spontaneous
  Country: US (occurrence: US)
  Receive Date: 20140310
  Receipt Date: 20140310
  Transmission Date: 20141002
  Serious: No
  Sender: FDA-Public Use
  Company Number: US-AMGEN-USASP2013072940

PATIENT
  Sex: Female

DRUGS (3)
  1. SENSIPAR [Suspect]
     Indication: HYPERPARATHYROIDISM SECONDARY
     Dosage: 30 MG, UNK
     Route: 048
     Dates: start: 201212
  2. SENSIPAR [Suspect]
  3. VITAMIN D                          /00107901/ [Concomitant]
     Dosage: 1 MUG, UNK

REACTIONS (1)
  - Blood parathyroid hormone decreased [Recovering/Resolving]
